FAERS Safety Report 19291656 (Version 1)
Quarter: 2021Q2

REPORT INFORMATION
  Report Type: Spontaneous
  Country: CN (occurrence: CN)
  Receive Date: 20210523
  Receipt Date: 20210523
  Transmission Date: 20210717
  Serious: Yes (Hospitalization, Other)
  Sender: FDA-Public Use
  Company Number: CN-SA-2021SA161761

PATIENT
  Sex: Male

DRUGS (6)
  1. ANTI?THYMOCYTE GLOBULIN (RABBIT) NOS [Suspect]
     Active Substance: LAPINE T-LYMPHOCYTE IMMUNE GLOBULIN
     Indication: KIDNEY TRANSPLANT REJECTION
     Dosage: 50 MG
  2. PREDNISONE. [Suspect]
     Active Substance: PREDNISONE
     Indication: IMMUNOSUPPRESSANT DRUG THERAPY
     Route: 048
  3. ANTI HUMAN T LYMPHOCYTE PORCINE IMMUNOGLOBULIN [Suspect]
     Active Substance: ANTI-HUMAN T LYMPHOCYTE PORCINE IMMUNOGLOBULIN
     Indication: KIDNEY TRANSPLANT REJECTION
     Dosage: 0.5 G
  4. MYCOPHENOLIC ACID. [Suspect]
     Active Substance: MYCOPHENOLIC ACID
     Indication: IMMUNOSUPPRESSANT DRUG THERAPY
     Route: 048
  5. ANTI?THYMOCYTE GLOBULIN (RABBIT) NOS [Suspect]
     Active Substance: LAPINE T-LYMPHOCYTE IMMUNE GLOBULIN
     Indication: IMMUNOSUPPRESSANT DRUG THERAPY
     Dosage: UNK
  6. TACROLIMUS. [Suspect]
     Active Substance: TACROLIMUS
     Indication: IMMUNOSUPPRESSANT DRUG THERAPY
     Dosage: UNK
     Route: 048

REACTIONS (11)
  - Pneumonia klebsiella [Recovering/Resolving]
  - Cardiac failure [Recovering/Resolving]
  - Pneumonia fungal [Recovering/Resolving]
  - Pneumocystis jirovecii pneumonia [Recovering/Resolving]
  - Candida infection [Recovering/Resolving]
  - Urinary tract infection fungal [Recovering/Resolving]
  - Dyspnoea [Recovering/Resolving]
  - Acinetobacter infection [Recovering/Resolving]
  - Hypoxia [Recovering/Resolving]
  - Cerebral infarction [Recovering/Resolving]
  - Respiratory failure [Recovering/Resolving]

NARRATIVE: CASE EVENT DATE: 2019
